FAERS Safety Report 5541662-5 (Version None)
Quarter: 2007Q4

REPORT INFORMATION
  Report Type: 
  Country: None (occurrence: None)
  Receive Date: 20071210
  Receipt Date: 20071128
  Transmission Date: 20080405
  Serious: Yes (Other)
  Sender: FDA-Public Use
  Company Number: PHHY2007BR00689

PATIENT
  Age: 52 Year
  Sex: Female

DRUGS (7)
  1. SYNTHROID [Concomitant]
  2. LANSOPRAZOLE [Concomitant]
  3. FUROSEMIDE [Concomitant]
  4. GLUCOFORMIN [Concomitant]
  5. AMARYL [Concomitant]
  6. DIGOXIN [Concomitant]
  7. DIOVAN AMLO [Suspect]
     Dosage: 160/5 MG
     Route: 048

REACTIONS (3)
  - BLOOD PRESSURE INCREASED [None]
  - DYSPNOEA [None]
  - SWELLING [None]
